FAERS Safety Report 7010262 (Version 2)
Quarter: 2014Q3

REPORT INFORMATION
  Report Type: Spontaneous
  Country: US (occurrence: None)
  Receive Date: 20090526
  Receipt Date: 20140923
  Transmission Date: 20150326
  Serious: Yes (Hospitalization, Other)
  Sender: FDA-Public Use
  Company Number: 2009S1004145

PATIENT
  Age: 58 Year
  Sex: Male
  Weight: 76.66 kg

DRUGS (8)
  1. ASPIRIN (ACETYLSALICYLIC ACID) [Concomitant]
     Active Substance: ASPIRIN
  2. HUMALOG [Concomitant]
     Active Substance: INSULIN LISPRO
  3. LANTUS [Concomitant]
     Active Substance: INSULIN GLARGINE
  4. NORVASC [Concomitant]
     Active Substance: AMLODIPINE BESYLATE
  5. SIMVASTATIN. [Concomitant]
     Active Substance: SIMVASTATIN
  6. BISACODYL. [Suspect]
     Active Substance: BISACODYL
     Indication: COLONOSCOPY
     Route: 048
     Dates: start: 20081021, end: 20081021
  7. PHOSPHO-SODA [Suspect]
     Active Substance: SODIUM PHOSPHATE, DIBASIC\SODIUM PHOSPHATE, MONOBASIC
     Indication: COLONOSCOPY
     Route: 048
     Dates: start: 20081021, end: 20081021
  8. HYDROCHLOROTHIAZIDE AND LISINOPRIL [Concomitant]
     Active Substance: HYDROCHLOROTHIAZIDE\LISINOPRIL

REACTIONS (13)
  - Dyspnoea [None]
  - Nausea [None]
  - Hyperlipidaemia [None]
  - Decreased appetite [None]
  - Haemoglobin decreased [None]
  - Acute phosphate nephropathy [None]
  - Blood parathyroid hormone increased [None]
  - Renal failure chronic [None]
  - Fatigue [None]
  - Oedema peripheral [None]
  - Diabetes mellitus [None]
  - Asthenia [None]
  - Hypertension [None]

NARRATIVE: CASE EVENT DATE: 200811
